FAERS Safety Report 19500048 (Version 1)
Quarter: 2021Q3

REPORT INFORMATION
  Report Type: Spontaneous
  Country: AU (occurrence: AU)
  Receive Date: 20210707
  Receipt Date: 20210707
  Transmission Date: 20211014
  Serious: Yes (Hospitalization)
  Sender: FDA-Public Use
  Company Number: AU-ABBVIE-21K-008-3949453-00

PATIENT
  Age: 9 Year
  Sex: Female

DRUGS (1)
  1. LUCRIN DEPOT [Suspect]
     Active Substance: LEUPROLIDE ACETATE
     Indication: PRODUCT USED FOR UNKNOWN INDICATION
     Route: 030
     Dates: start: 20200303

REACTIONS (12)
  - Arthralgia [Unknown]
  - Vomiting [Recovered/Resolved]
  - Pyrexia [Recovered/Resolved]
  - Injection site haemorrhage [Unknown]
  - Injection site erythema [Unknown]
  - Injection site mass [Unknown]
  - Injection site vesicles [Unknown]
  - C-reactive protein increased [Unknown]
  - Injection site inflammation [Unknown]
  - Injection site pain [Unknown]
  - Gait disturbance [Unknown]
  - Soft tissue infection [Unknown]

NARRATIVE: CASE EVENT DATE: 2021
